FAERS Safety Report 7259679-1 (Version None)
Quarter: 2011Q1

REPORT INFORMATION
  Report Type: 
  Country: None (occurrence: None)
  Receive Date: 20110130
  Receipt Date: 20101001
  Transmission Date: 20110831
  Serious: No
  Sender: FDA-Public Use
  Company Number: US-ABBOTT-10P-163-0656229-00

PATIENT
  Age: 68 Year
  Sex: Female

DRUGS (8)
  1. PRAVASTATIN SODIUM [Concomitant]
     Indication: BLOOD CHOLESTEROL
  2. MICARDIS [Concomitant]
     Indication: BLOOD PRESSURE
  3. BETAMETHASONE .05% [Concomitant]
     Indication: PSORIASIS
  4. ALLOPURINOL [Concomitant]
     Indication: GOUT
  5. LEVOTHYROXINE SODIUM [Concomitant]
     Indication: THYROID DISORDER
  6. HUMIRA [Suspect]
     Indication: PSORIASIS
     Dates: start: 20100520
  7. FOLIC ACID [Concomitant]
     Indication: PRODUCT USED FOR UNKNOWN INDICATION
  8. ASA [Concomitant]
     Indication: PRODUCT USED FOR UNKNOWN INDICATION

REACTIONS (2)
  - INJECTION SITE PAIN [None]
  - DEVICE MALFUNCTION [None]
